FAERS Safety Report 8343476-X (Version None)
Quarter: 2012Q2

REPORT INFORMATION
  Report Type: 
  Country: None (occurrence: None)
  Receive Date: 20120508
  Receipt Date: 20100515
  Transmission Date: 20120825
  Serious: No
  Sender: FDA-Public Use
  Company Number: US-TEVA-2010002775

PATIENT
  Sex: Female

DRUGS (5)
  1. ATIVAN [Concomitant]
  2. TREANDA [Suspect]
     Route: 042
  3. DEXAMETHASONE [Concomitant]
  4. RITUXIMAB [Concomitant]
  5. COMPAZINE [Concomitant]

REACTIONS (2)
  - VOMITING [None]
  - NAUSEA [None]
